FAERS Safety Report 9785630 (Version 2)
Quarter: 2014Q1

REPORT INFORMATION
  Report Type: Spontaneous
  Country: JP (occurrence: JP)
  Receive Date: 20131227
  Receipt Date: 20140127
  Transmission Date: 20141002
  Serious: Yes (Hospitalization, Other)
  Sender: FDA-Public Use
  Company Number: JP-ELI_LILLY_AND_COMPANY-JP201312008190

PATIENT
  Age: 71 Year
  Sex: Male

DRUGS (1)
  1. ZYPREXA FINE GRANULE 1% [Suspect]
     Indication: PRODUCT USED FOR UNKNOWN INDICATION
     Dosage: 10 MG, EACH EVENING
     Route: 048

REACTIONS (3)
  - Malnutrition [Unknown]
  - Neuroleptic malignant syndrome [Recovering/Resolving]
  - Pneumonia [Unknown]
